FAERS Safety Report 8383711-5 (Version None)
Quarter: 2012Q1

REPORT INFORMATION
  Report Type: 
  Country: None (occurrence: None)
  Receive Date: 20120323
  Receipt Date: 20110418
  Transmission Date: 20120608
  Serious: Yes (Hospitalization, Other)
  Sender: FDA-Public Use
  Company Number: 163-21880-11030553

PATIENT
  Age: 60 Year
  Sex: Male
  Weight: 101.6057 kg

DRUGS (7)
  1. IRON (IRON) [Concomitant]
  2. ASPIRIN [Concomitant]
  3. PREVACID [Concomitant]
  4. CARDIZEM CD [Concomitant]
  5. REVLIMID [Suspect]
     Indication: MULTIPLE MYELOMA
     Dosage: 25 MG, 1 IN 1D, PO
     Route: 048
     Dates: start: 20060809, end: 20110214
  6. COUMADIN [Concomitant]
  7. AMBIEN [Concomitant]

REACTIONS (4)
  - DEHYDRATION [None]
  - INFLUENZA [None]
  - CLOSTRIDIAL INFECTION [None]
  - RENAL FAILURE ACUTE [None]
